APPROVED DRUG PRODUCT: AMVUTTRA
Active Ingredient: VUTRISIRAN SODIUM
Strength: EQ 25MG BASE/0.5ML (EQ 25MG BASE/0.5ML)
Dosage Form/Route: SOLUTION;SUBCUTANEOUS
Application: N215515 | Product #001
Applicant: ALNYLAM PHARMACEUTICALS INC
Approved: Jun 13, 2022 | RLD: Yes | RS: Yes | Type: RX

PATENTS:
Patent 11401517 | Expires: Aug 14, 2035
Patent 9399775 | Expires: Nov 16, 2032
Patent 11286486 | Expires: Jul 28, 2036
Patent 10683501 | Expires: Jul 28, 2036
Patent 9370581 | Expires: Dec 4, 2028
Patent 8828956 | Expires: Dec 4, 2028
Patent 10131907 | Expires: Aug 24, 2028
Patent 8106022 | Expires: Dec 12, 2029
Patent 10612024 | Expires: Aug 14, 2035
Patent 10208307 | Expires: Jul 28, 2036
Patent 10570391 | Expires: Nov 16, 2032
Patent 12049628 | Expires: Jul 28, 2036
Patent 10806791 | Expires: Dec 4, 2028

EXCLUSIVITY:
Code: I-964 | Date: Mar 20, 2028
Code: NCE | Date: Jun 13, 2027
Code: ODE-212 | Date: Jun 13, 2029